FAERS Safety Report 4703920-3 (Version None)
Quarter: 2005Q2

REPORT INFORMATION
  Report Type: 
  Country: None (occurrence: None)
  Receive Date: 20050628
  Receipt Date: 20050614
  Transmission Date: 20051028
  Serious: Yes (Other)
  Sender: FDA-Public Use
  Company Number: USA050598007

PATIENT
  Age: 27 Year
  Sex: Female
  Weight: 62 kg

DRUGS (4)
  1. CYMBALTA [Suspect]
     Indication: DEPRESSION
     Dosage: 60 MG DAY
     Dates: start: 20050503, end: 20050507
  2. PAXIL [Concomitant]
  3. ULTRAM [Concomitant]
  4. EXCEDRIN (MIGRAINE) [Concomitant]

REACTIONS (13)
  - AMNESIA [None]
  - BITE [None]
  - BLOOD ALBUMIN DECREASED [None]
  - BLOOD GLUCOSE DECREASED [None]
  - EPISTAXIS [None]
  - FALL [None]
  - FATIGUE [None]
  - GRAND MAL CONVULSION [None]
  - HEADACHE [None]
  - MONOCYTE COUNT DECREASED [None]
  - PROTEIN TOTAL DECREASED [None]
  - SINUSITIS [None]
  - WHITE BLOOD CELL COUNT INCREASED [None]
